FAERS Safety Report 8120629-7 (Version None)
Quarter: 2012Q1

REPORT INFORMATION
  Report Type: 
  Country: None (occurrence: None)
  Receive Date: 20120207
  Receipt Date: 20120203
  Transmission Date: 20120608
  Serious: No
  Sender: FDA-Public Use
  Company Number: US-BAYER-2012-011440

PATIENT
  Sex: Female

DRUGS (2)
  1. ANGELIQ [Suspect]
     Indication: ACNE
  2. ANGELIQ [Suspect]
     Indication: SKIN DISORDER

REACTIONS (2)
  - BLOOD CORTISOL INCREASED [None]
  - BLOOD CORTICOTROPHIN INCREASED [None]
